FAERS Safety Report 6495256-8 (Version None)
Quarter: 2009Q4

REPORT INFORMATION
  Report Type: 
  Country: None (occurrence: None)
  Receive Date: 20091214
  Receipt Date: 20090519
  Transmission Date: 20100525
  Serious: No
  Sender: FDA-Public Use
  Company Number: US-BRISTOL-MYERS SQUIBB COMPANY-14631048

PATIENT
  Sex: Female

DRUGS (5)
  1. ABILIFY [Suspect]
     Indication: BIPOLAR DISORDER
     Route: 048
     Dates: start: 20020101, end: 20020101
  2. DEPAKOTE [Suspect]
     Indication: BIPOLAR DISORDER
     Dosage: FORM = TABS
     Route: 048
     Dates: end: 20020101
  3. WELLBUTRIN [Concomitant]
  4. LITHIUM [Concomitant]
     Indication: BIPOLAR DISORDER
  5. OXCARBAZEPINE [Concomitant]
     Indication: BIPOLAR DISORDER
     Dates: start: 20020101

REACTIONS (3)
  - ATAXIA [None]
  - BALANCE DISORDER [None]
  - ESSENTIAL TREMOR [None]
